FAERS Safety Report 24860311 (Version 1)
Quarter: 2025Q1

REPORT INFORMATION
  Report Type: Spontaneous
  Country: MX (occurrence: MX)
  Receive Date: 20250120
  Receipt Date: 20250120
  Transmission Date: 20250409
  Serious: Yes (Other)
  Sender: SANDOZ
  Company Number: MX-002147023-NVSC2021MX051534

PATIENT
  Sex: Female
  Weight: 72 kg

DRUGS (8)
  1. EXELON [Suspect]
     Active Substance: RIVASTIGMINE TARTRATE
     Indication: Senile dementia
     Dosage: 1 DF, QD
     Route: 062
     Dates: start: 2016
  2. EXELON [Suspect]
     Active Substance: RIVASTIGMINE TARTRATE
     Indication: Product used for unknown indication
     Dosage: 1 DOSAGE FORM, QD (10, EXTENDED RELEASE, 1 PATCH DAILY)
     Route: 065
  3. DETRUSITOL [Concomitant]
     Active Substance: TOLTERODINE TARTRATE
     Indication: Urinary incontinence
     Dosage: 1 DF, QD
     Route: 048
     Dates: start: 2015
  4. DETRUSITOL [Concomitant]
     Active Substance: TOLTERODINE TARTRATE
     Dosage: 2 DF, QD
     Route: 048
  5. MEMANTINE HYDROCHLORIDE [Concomitant]
     Active Substance: MEMANTINE HYDROCHLORIDE
     Indication: Product used for unknown indication
     Route: 065
  6. ACETAMINOPHEN [Concomitant]
     Active Substance: ACETAMINOPHEN
     Indication: Osteoarthritis
     Dosage: 1 DF, TID
     Route: 048
  7. TRAMADOL [Concomitant]
     Active Substance: TRAMADOL
     Indication: Osteoarthritis
     Route: 048
  8. TRAMADOL [Concomitant]
     Active Substance: TRAMADOL
     Route: 048

REACTIONS (7)
  - Malignant palate neoplasm [Recovered/Resolved]
  - Neurodegenerative disorder [Not Recovered/Not Resolved]
  - Hallucination [Unknown]
  - Memory impairment [Not Recovered/Not Resolved]
  - Aggression [Not Recovered/Not Resolved]
  - Psychomotor hyperactivity [Unknown]
  - Aggression [Unknown]

NARRATIVE: CASE EVENT DATE: 20170101
